FAERS Safety Report 4314216-6 (Version None)
Quarter: 2004Q1

REPORT INFORMATION
  Report Type: 
  Country: None (occurrence: None)
  Receive Date: 20040304
  Receipt Date: 20030711
  Transmission Date: 20041129
  Serious: Yes (Other)
  Sender: FDA-Public Use
  Company Number: 201582

PATIENT
  Age: 16 Year
  Sex: Male

DRUGS (1)
  1. NUTROPIN AQ [Suspect]
     Indication: GROWTH HORMONE DEFICIENCY

REACTIONS (3)
  - INTRACRANIAL PRESSURE INCREASED [None]
  - VISION BLURRED [None]
  - VOMITING [None]
